FAERS Safety Report 18972717 (Version 1)
Quarter: 2021Q1

REPORT INFORMATION
  Report Type: Spontaneous
  Country: US (occurrence: US)
  Receive Date: 20210304
  Receipt Date: 20210304
  Transmission Date: 20210420
  Serious: Yes (Death)
  Sender: FDA-Public Use
  Company Number: None

PATIENT
  Age: 89 Year
  Sex: Male

DRUGS (1)
  1. REPATHA [Suspect]
     Active Substance: EVOLOCUMAB
     Indication: TYPE IIA HYPERLIPIDAEMIA
     Dosage: OTHER DOSE:1 PEN ;?
     Route: 058
     Dates: start: 20191030, end: 20210202

REACTIONS (1)
  - Death [None]

NARRATIVE: CASE EVENT DATE: 20210202
